FAERS Safety Report 12301183 (Version 1)
Quarter: 2016Q2

REPORT INFORMATION
  Report Type: Spontaneous
  Country: US (occurrence: US)
  Receive Date: 20160425
  Receipt Date: 20160425
  Transmission Date: 20160815
  Serious: Yes (Other)
  Sender: FDA-Public Use
  Company Number: US-BAYER-2016-073438

PATIENT
  Age: 53 Year
  Sex: Male

DRUGS (1)
  1. KOGENATE FS [Suspect]
     Active Substance: ANTIHEMOPHILIC FACTOR, HUMAN RECOMBINANT
     Indication: FACTOR VIII DEFICIENCY
     Dosage: 2000 UNK, PM, ON DEMAND
     Route: 042

REACTIONS (2)
  - Haemorrhage [None]
  - Renal haemorrhage [None]

NARRATIVE: CASE EVENT DATE: 20160412
